FAERS Safety Report 5924281-8 (Version None)
Quarter: 2008Q4

REPORT INFORMATION
  Report Type: 
  Country: None (occurrence: None)
  Receive Date: 20081020
  Receipt Date: 20081013
  Transmission Date: 20090506
  Serious: Yes (Other)
  Sender: FDA-Public Use
  Company Number: US-ELI_LILLY_AND_COMPANY-US200809003521

PATIENT
  Sex: Female
  Weight: 86.621 kg

DRUGS (7)
  1. BYETTA [Suspect]
     Dosage: 10 UG, UNKNOWN
     Dates: start: 20080601, end: 20080910
  2. GLIPIZIDE [Concomitant]
     Indication: DIABETES MELLITUS
     Dosage: 5 MG, UNKNOWN
     Route: 048
  3. XANAX [Concomitant]
     Indication: BIPOLAR DISORDER
     Dosage: 1 MG, 3/D
  4. WELLBUTRIN [Concomitant]
     Indication: BIPOLAR DISORDER
     Dosage: 300 MG, UNKNOWN
     Route: 048
  5. KLONOPIN [Concomitant]
     Indication: BIPOLAR DISORDER
     Dosage: 0.5 MG, 2/D
  6. FLONASE [Concomitant]
     Indication: HYPERSENSITIVITY
     Dosage: UNK, UNKNOWN
     Route: 045
  7. LAMICTAL [Concomitant]
     Indication: BIPOLAR DISORDER
     Dosage: 200 MG, 2/D

REACTIONS (4)
  - BINGE EATING [None]
  - BRONCHOPULMONARY DYSPLASIA [None]
  - EMPHYSEMA [None]
  - HEPATITIS C [None]
